FAERS Safety Report 24016585 (Version 1)
Quarter: 2024Q2

REPORT INFORMATION
  Report Type: Spontaneous
  Country: FR (occurrence: FR)
  Receive Date: 20240626
  Receipt Date: 20240626
  Transmission Date: 20240716
  Serious: Yes (Hospitalization)
  Sender: FDA-Public Use
  Company Number: None

PATIENT
  Age: 60 Year
  Sex: Female
  Weight: 107 kg

DRUGS (1)
  1. SKYRIZI [Suspect]
     Active Substance: RISANKIZUMAB-RZAA
     Indication: Psoriasis
     Dosage: 150 MG, SOLUTION FOR INJECTION IN PRE-FILLED SYRINGE?150MG WEEK 0 WEEK 4 THEN EVERY 12 WEEKS
     Route: 058
     Dates: start: 20240306, end: 20240406

REACTIONS (1)
  - Aortitis [Recovering/Resolving]

NARRATIVE: CASE EVENT DATE: 20240520
